FAERS Safety Report 14664461 (Version 1)
Quarter: 2018Q1

REPORT INFORMATION
  Report Type: Spontaneous
  Country: US (occurrence: US)
  Receive Date: 20180321
  Receipt Date: 20180321
  Transmission Date: 20180509
  Serious: No
  Sender: FDA-Public Use
  Company Number: US-PFIZER INC-2018118208

PATIENT
  Age: 18 Year
  Sex: Female
  Weight: 81.65 kg

DRUGS (2)
  1. DEPO-PROVERA [Suspect]
     Active Substance: MEDROXYPROGESTERONE ACETATE
     Indication: CONTRACEPTION
     Dosage: 1 DF, EVERY 3 MONTHS (1 INJECTION EVERY 3 MONTHS IN THE ARM OR LEG)
     Dates: start: 201604, end: 201704
  2. XULANE [Suspect]
     Active Substance: ETHINYL ESTRADIOL\NORELGESTROMIN
     Indication: CONTRACEPTION
     Dosage: 1 DF, WEEKLY(APPLIES 1 PATCH A WEEK ON THE BACK OR ARM)
     Route: 062
     Dates: start: 201703, end: 201708

REACTIONS (1)
  - Infertility female [Not Recovered/Not Resolved]

NARRATIVE: CASE EVENT DATE: 201704
